FAERS Safety Report 6535205-7 (Version None)
Quarter: 2010Q1

REPORT INFORMATION
  Report Type: 
  Country: None (occurrence: None)
  Receive Date: 20100111
  Receipt Date: 20100111
  Transmission Date: 20100710
  Serious: Yes (Life-Threatening, Hospitalization)
  Sender: FDA-Public Use
  Company Number: None

PATIENT
  Sex: Male
  Weight: 87.9978 kg

DRUGS (1)
  1. CWI3 300-CYPHER US OTW 300 X 13 [Suspect]
     Indication: ARTERIAL OCCLUSIVE DISEASE
     Dosage: IMPLANTED 12/2/06 TAKEN OUT 5/15/08

REACTIONS (3)
  - ANEURYSM [None]
  - MALAISE [None]
  - MEDICAL DEVICE SITE REACTION [None]
